FAERS Safety Report 11742708 (Version 2)
Quarter: 2015Q4

REPORT INFORMATION
  Report Type: Spontaneous
  Country: US (occurrence: US)
  Receive Date: 20151116
  Receipt Date: 20151118
  Transmission Date: 20160304
  Serious: Yes (Other)
  Sender: FDA-Public Use
  Company Number: US-SA-2015SA139686

PATIENT
  Sex: Female

DRUGS (1)
  1. CAPZASIN HP ARTHRITIS PAIN RELIEF [Suspect]
     Active Substance: CAPSAICIN
     Route: 065

REACTIONS (4)
  - Wound [Unknown]
  - Skin burning sensation [Unknown]
  - Scar [Unknown]
  - Off label use [Unknown]
